FAERS Safety Report 16930635 (Version 2)
Quarter: 2020Q3

REPORT INFORMATION
  Report Type: Spontaneous
  Country: US (occurrence: US)
  Receive Date: 20191017
  Receipt Date: 20200714
  Transmission Date: 20201102
  Serious: No
  Sender: FDA-Public Use
  Company Number: US-PFIZER INC-2019446598

PATIENT
  Age: 69 Year
  Sex: Male

DRUGS (3)
  1. BOSULIF [Suspect]
     Active Substance: BOSUTINIB MONOHYDRATE
     Indication: ACUTE LYMPHOCYTIC LEUKAEMIA
     Dosage: UNK
  2. BOSULIF [Suspect]
     Active Substance: BOSUTINIB MONOHYDRATE
     Indication: CHRONIC MYELOID LEUKAEMIA
  3. BOSULIF [Suspect]
     Active Substance: BOSUTINIB MONOHYDRATE
     Indication: PHILADELPHIA CHROMOSOME POSITIVE

REACTIONS (7)
  - Product use in unapproved indication [Unknown]
  - Constipation [Unknown]
  - Swelling face [Unknown]
  - Ear swelling [Unknown]
  - Hypoaesthesia [Unknown]
  - Lip swelling [Unknown]
  - Off label use [Unknown]
